FAERS Safety Report 4613720-0 (Version None)
Quarter: 2005Q1

REPORT INFORMATION
  Report Type: 
  Country: None (occurrence: None)
  Receive Date: 20050318
  Receipt Date: 20050318
  Transmission Date: 20050727
  Serious: Yes (Hospitalization)
  Sender: FDA-Public Use
  Company Number: None

PATIENT
  Age: 76 Year
  Sex: Male
  Weight: 99.3377 kg

DRUGS (2)
  1. METOPROLOL TARTRATE [Suspect]
     Indication: HYPERTENSION
     Dosage: 50 MG BID
  2. DILTIAZEM 360 MG ER [Suspect]

REACTIONS (2)
  - BRADYCARDIA [None]
  - SYNCOPE [None]
